FAERS Safety Report 4528743-X (Version None)
Quarter: 2004Q4

REPORT INFORMATION
  Report Type: 
  Country: None (occurrence: None)
  Receive Date: 20041214
  Receipt Date: 20041130
  Transmission Date: 20050328
  Serious: Yes (Other)
  Sender: FDA-Public Use
  Company Number: FR-2004-036033

PATIENT
  Age: 19 Year
  Sex: Female

DRUGS (1)
  1. YASMIN [Suspect]
     Dosage: 1 TAB(S), 21D/28D, ORAL
     Route: 048
     Dates: start: 20040401, end: 20041101

REACTIONS (8)
  - ANAPHYLACTIC SHOCK [None]
  - EOSINOPHILIA [None]
  - ERYTHEMA [None]
  - FEELING ABNORMAL [None]
  - GASTROENTERITIS [None]
  - LOSS OF CONSCIOUSNESS [None]
  - SEPTIC SHOCK [None]
  - SKIN DESQUAMATION [None]
